FAERS Safety Report 5455071-0 (Version None)
Quarter: 2007Q3

REPORT INFORMATION
  Report Type: 
  Country: None (occurrence: None)
  Receive Date: 20070913
  Receipt Date: 20070823
  Transmission Date: 20080115
  Serious: Yes (Death)
  Sender: FDA-Public Use
  Company Number: 6037411

PATIENT
  Age: 68 Year
  Sex: Male

DRUGS (2)
  1. CLARITHROMYCIN [Suspect]
     Indication: PNEUMONIA
     Dosage: 1000 MG (500 MG, 2 IN D) ORAL
     Route: 048
  2. COLCHICUM JTL LIQ [Suspect]
     Indication: GOUTY ARTHRITIS
     Dosage: 2 MG (0,5 MG, 1 IN 6 HR); 1,5 MG (0,5 MG, 1 IN 8 HR) ORAL
     Route: 048

REACTIONS (12)
  - ACUTE HEPATIC FAILURE [None]
  - AGRANULOCYTOSIS [None]
  - BONE MARROW FAILURE [None]
  - CHILLS [None]
  - DIARRHOEA [None]
  - DRUG INTERACTION [None]
  - HEPATIC NECROSIS [None]
  - HYPOTENSION [None]
  - ILEUS PARALYTIC [None]
  - PANCYTOPENIA [None]
  - PYREXIA [None]
  - RENAL FAILURE ACUTE [None]
